FAERS Safety Report 13113834 (Version 1)
Quarter: 2017Q1

REPORT INFORMATION
  Report Type: Spontaneous
  Country: US (occurrence: US)
  Receive Date: 20170113
  Receipt Date: 20170113
  Transmission Date: 20170428
  Serious: No
  Sender: FDA-Public Use
  Company Number: US-LUNDBECK-DKLU2020639

PATIENT
  Age: 60 Year
  Sex: Female

DRUGS (1)
  1. NORTHERA [Suspect]
     Active Substance: DROXIDOPA
     Indication: PRODUCT USED FOR UNKNOWN INDICATION
     Route: 065
     Dates: start: 20160916

REACTIONS (4)
  - Dizziness [Unknown]
  - Urticaria [Recovered/Resolved]
  - Headache [Unknown]
  - Balance disorder [Unknown]

NARRATIVE: CASE EVENT DATE: 20161003
